FAERS Safety Report 22332534 (Version 1)
Quarter: 2023Q2

REPORT INFORMATION
  Report Type: Spontaneous
  Country: US (occurrence: None)
  Receive Date: 20230516
  Receipt Date: 20230516
  Transmission Date: 20230721
  Serious: Yes (unspecified)
  Sender: FDA-Public Use
  Company Number: None

PATIENT
  Age: 44 Year
  Sex: Male
  Weight: 66.6 kg

DRUGS (1)
  1. HYDROGEN PEROXIDE [Suspect]
     Active Substance: HYDROGEN PEROXIDE
     Indication: Product used for unknown indication
     Dosage: OTHER QUANTITY : 1 SMALL AMOUNT;?FREQUENCY : AS NEEDED;?
     Route: 061

REACTIONS (2)
  - Vomiting [None]
  - Pruritus [None]

NARRATIVE: CASE EVENT DATE: 20230515
